FAERS Safety Report 17733990 (Version 1)
Quarter: 2020Q2

REPORT INFORMATION
  Report Type: Spontaneous
  Country: US (occurrence: US)
  Receive Date: 20200501
  Receipt Date: 20200501
  Transmission Date: 20200714
  Serious: Yes (Hospitalization)
  Sender: FDA-Public Use
  Company Number: None

PATIENT
  Age: 29 Year
  Sex: Male

DRUGS (1)
  1. SEPTRA [Suspect]
     Active Substance: SULFAMETHOXAZOLE\TRIMETHOPRIM
     Indication: PROSTATITIS
     Route: 048
     Dates: start: 20200408, end: 20200427

REACTIONS (6)
  - Cholecystitis chronic [None]
  - Coronavirus infection [None]
  - Pyrexia [None]
  - Leukopenia [None]
  - Cholecystitis acute [None]
  - Epstein-Barr virus antigen positive [None]

NARRATIVE: CASE EVENT DATE: 20200427
